APPROVED DRUG PRODUCT: POTASSIUM CHLORIDE IN PLASTIC CONTAINER
Active Ingredient: POTASSIUM CHLORIDE
Strength: 2MEQ/ML
Dosage Form/Route: INJECTABLE;INJECTION
Application: A088901 | Product #001 | TE Code: AP
Applicant: FRESENIUS KABI USA LLC
Approved: Jan 25, 1985 | RLD: No | RS: No | Type: RX